FAERS Safety Report 17445483 (Version 6)
Quarter: 2020Q3

REPORT INFORMATION
  Report Type: Report from Study
  Country: US (occurrence: US)
  Receive Date: 20200221
  Receipt Date: 20200819
  Transmission Date: 20201102
  Serious: Yes (Hospitalization, Other)
  Sender: FDA-Public Use
  Company Number: NVSC2020US048243

PATIENT
  Sex: Male
  Weight: 76.19 kg

DRUGS (7)
  1. COUMADIN [Concomitant]
     Active Substance: WARFARIN SODIUM
     Indication: PRODUCT USED FOR UNKNOWN INDICATION
     Dosage: UNK
     Route: 065
  2. TADALAFIL. [Concomitant]
     Active Substance: TADALAFIL
     Indication: PRODUCT USED FOR UNKNOWN INDICATION
     Dosage: UNK
     Route: 065
  3. TREPROSTINIL. [Suspect]
     Active Substance: TREPROSTINIL
     Indication: PULMONARY ARTERIAL HYPERTENSION
     Dosage: UNK (27 NG/KG/MIN CONTINUOUS)
     Route: 042
     Dates: start: 20200213
  4. LETAIRIS [Concomitant]
     Active Substance: AMBRISENTAN
     Indication: PRODUCT USED FOR UNKNOWN INDICATION
     Dosage: UNK
     Route: 065
  5. TREPROSTINIL. [Suspect]
     Active Substance: TREPROSTINIL
     Dosage: UNK (23 NG/KG/MIN CONTINUOUS)
     Route: 065
     Dates: start: 20200213
  6. AMBRISENTAN [Concomitant]
     Active Substance: AMBRISENTAN
     Indication: PRODUCT USED FOR UNKNOWN INDICATION
     Dosage: UNK
     Route: 065
  7. TREPROSTINIL. [Suspect]
     Active Substance: TREPROSTINIL
     Dosage: UNK (30 NG/KG/MIN CONTINUOUS)
     Route: 042
     Dates: start: 20200213

REACTIONS (10)
  - Heart sounds abnormal [Unknown]
  - Pneumonia [Unknown]
  - Chest pain [Unknown]
  - Nausea [Unknown]
  - Pain in jaw [Unknown]
  - Dizziness [Unknown]
  - Device issue [Unknown]
  - Back pain [Unknown]
  - Headache [Unknown]
  - Erythema [Unknown]
